FAERS Safety Report 4886203-0 (Version None)
Quarter: 2006Q1

REPORT INFORMATION
  Report Type: 
  Country: None (occurrence: None)
  Receive Date: 20060118
  Receipt Date: 20060106
  Transmission Date: 20060701
  Serious: Yes (Death, Hospitalization, Other)
  Sender: FDA-Public Use
  Company Number: 2005118571

PATIENT
  Sex: Female
  Weight: 81.6475 kg

DRUGS (5)
  1. CELEBREX [Suspect]
     Indication: OSTEOARTHRITIS
     Dates: end: 20050701
  2. GENITO URINARY SYSTEM AND SEX HORMONES (GENITO URINARY SYSTEM AND SEX [Concomitant]
  3. ANTIHYPERTENSIVES (ANTIHYPERTENSIVES) [Concomitant]
  4. DIURETICS (DIURETICS) [Concomitant]
  5. LIPITOR [Concomitant]

REACTIONS (10)
  - ABASIA [None]
  - ABDOMINAL PAIN UPPER [None]
  - BACK PAIN [None]
  - CARDIAC FAILURE CONGESTIVE [None]
  - CHEST PAIN [None]
  - DECREASED APPETITE [None]
  - EYE DISORDER [None]
  - FALL [None]
  - RIB FRACTURE [None]
  - STAPHYLOCOCCAL INFECTION [None]
